FAERS Safety Report 17117578 (Version 1)
Quarter: 2019Q4

REPORT INFORMATION
  Report Type: Spontaneous
  Country: ES (occurrence: ES)
  Receive Date: 20191205
  Receipt Date: 20191205
  Transmission Date: 20200122
  Serious: Yes (Other)
  Sender: FDA-Public Use
  Company Number: ES-SAMSUNG BIOEPIS-SB-2019-35125

PATIENT
  Age: 59 Year
  Sex: Male

DRUGS (2)
  1. ENBREL [Concomitant]
     Active Substance: ETANERCEPT
     Indication: SPONDYLOARTHROPATHY
     Route: 058
     Dates: start: 2014, end: 20181009
  2. BENEPALI [Suspect]
     Active Substance: ETANERCEPT
     Indication: SPONDYLOARTHROPATHY
     Route: 058
     Dates: start: 20181009, end: 20181219

REACTIONS (3)
  - Off label use [Unknown]
  - Arthralgia [Recovered/Resolved]
  - Drug ineffective [Recovered/Resolved]

NARRATIVE: CASE EVENT DATE: 20181017
